FAERS Safety Report 4609437-9 (Version None)
Quarter: 2005Q1

REPORT INFORMATION
  Report Type: 
  Country: None (occurrence: None)
  Receive Date: 20050314
  Receipt Date: 20050228
  Transmission Date: 20050727
  Serious: Yes (Disabling)
  Sender: FDA-Public Use
  Company Number: 2005041171

PATIENT
  Age: 70 Year
  Sex: Male

DRUGS (8)
  1. CARDENALIN (DOXAZOSIN) [Suspect]
     Indication: ESSENTIAL HYPERTENSION
     Dosage: 2 MG, ORAL
     Route: 048
     Dates: end: 20050101
  2. OLMESARTAN MEDOXOMIL (OLMESARTAN MEDOXOMIL) [Suspect]
     Indication: ESSENTIAL HYPERTENSION
     Dosage: 20 MG, ORAL
     Route: 048
     Dates: start: 20040910, end: 20050101
  3. CLIOSTAZOL (CILOSTAZOL) [Suspect]
     Indication: ESSENTIAL HYPERTENSION
     Dosage: 200 MG, ORAL
     Route: 048
     Dates: end: 20040101
  4. VOGLIBOSE (VOGLIBOSE) [Concomitant]
  5. STARLIX [Concomitant]
  6. CHOUTOUSAN (HERBAL EXTRACTS NOS) [Concomitant]
  7. GOSYAZINKIGAN (HERBAL EXTRACTS NOS) [Concomitant]
  8. TELMISARTAN (TELMISARTAN) [Concomitant]

REACTIONS (4)
  - CEREBRAL INFARCTION [None]
  - DEPRESSED LEVEL OF CONSCIOUSNESS [None]
  - DISEASE PROGRESSION [None]
  - HYPOGLYCAEMIA [None]
